FAERS Safety Report 5582528-4 (Version None)
Quarter: 2007Q4

REPORT INFORMATION
  Report Type: 
  Country: None (occurrence: None)
  Receive Date: 20071130
  Receipt Date: 20070227
  Transmission Date: 20080405
  Serious: Yes (Other)
  Sender: FDA-Public Use
  Company Number: WAES 0702USA04542

PATIENT
  Age: 68 Year
  Sex: Male

DRUGS (3)
  1. FOSAMAX [Suspect]
     Indication: OSTEOPOROSIS
     Dosage: 10 MG/DAILY/PO
     Route: 048
     Dates: start: 19980501, end: 20030901
  2. KEPPRA [Concomitant]
  3. ZOLOFT [Concomitant]

REACTIONS (2)
  - DEPRESSION [None]
  - OSTEONECROSIS [None]
